FAERS Safety Report 17923296 (Version 1)
Quarter: 2020Q2

REPORT INFORMATION
  Report Type: Spontaneous
  Country: US (occurrence: US)
  Receive Date: 20200621
  Receipt Date: 20200621
  Transmission Date: 20200714
  Serious: No
  Sender: FDA-Public Use
  Company Number: None

PATIENT
  Age: 71 Year
  Sex: Male

DRUGS (1)
  1. EMPAGLIFLOZIN (EMPAGLIFLOZIN 25MG TAB) [Suspect]
     Active Substance: EMPAGLIFLOZIN
     Indication: DIABETES MELLITUS
     Dates: start: 20191030, end: 20191114

REACTIONS (5)
  - Purulent discharge [None]
  - Rash erythematous [None]
  - Fungal infection [None]
  - Pruritus [None]
  - Genitourinary tract infection [None]

NARRATIVE: CASE EVENT DATE: 20191114
